FAERS Safety Report 6254148-X (Version None)
Quarter: 2009Q2

REPORT INFORMATION
  Report Type: 
  Country: None (occurrence: None)
  Receive Date: 20090629
  Receipt Date: 20080930
  Transmission Date: 20091009
  Serious: Yes (Other)
  Sender: FDA-Public Use
  Company Number: PROG00208004624

PATIENT
  Age: 34 Year
  Sex: Female
  Weight: 59 kg

DRUGS (3)
  1. PROMETRIUM [Suspect]
     Indication: ABORTION
     Dosage: 200 MILLIGRAM(S) QD ORAL DAILY DOSE: 200 MILLIGRAM(S)
     Route: 048
     Dates: start: 20070901, end: 20070901
  2. PROMETRIUM [Suspect]
     Indication: PROPHYLAXIS
     Dosage: 200 MILLIGRAM(S) QD ORAL DAILY DOSE: 200 MILLIGRAM(S)
     Route: 048
     Dates: start: 20070901, end: 20070901
  3. PRENATAL [Concomitant]

REACTIONS (1)
  - ABORTION SPONTANEOUS [None]
